FAERS Safety Report 10284872 (Version 1)
Quarter: 2014Q3

REPORT INFORMATION
  Report Type: Spontaneous
  Country: GB (occurrence: GB)
  Receive Date: 20140708
  Receipt Date: 20140708
  Transmission Date: 20150326
  Serious: Yes (Hospitalization)
  Sender: FDA-Public Use
  Company Number: GB-TEVA-492135ISR

PATIENT
  Age: 29 Year
  Sex: Female

DRUGS (4)
  1. OLANZAPINE. [Suspect]
     Active Substance: OLANZAPINE
     Indication: INJURY
     Dosage: 5 MILLIGRAM DAILY; 5 MG, QD
     Route: 048
  2. ZOPICLONE [Concomitant]
     Active Substance: ZOPICLONE
     Indication: INSOMNIA
     Dosage: UNK
  3. OLANZAPINE. [Suspect]
     Active Substance: OLANZAPINE
     Dosage: 1 DOSAGE FORMS DAILY; 1 DF, QD
     Route: 048
  4. OLANZAPINE. [Suspect]
     Active Substance: OLANZAPINE
     Dosage: 10 MILLIGRAM DAILY;
     Route: 048

REACTIONS (6)
  - Emotional distress [Recovering/Resolving]
  - Insomnia [Unknown]
  - Amnesia [Not Recovered/Not Resolved]
  - Activities of daily living impaired [Recovering/Resolving]
  - Memory impairment [Not Recovered/Not Resolved]
  - Off label use [Unknown]
